FAERS Safety Report 24153874 (Version 1)
Quarter: 2024Q3

REPORT INFORMATION
  Report Type: Spontaneous
  Country: JP (occurrence: JP)
  Receive Date: 20240730
  Receipt Date: 20240730
  Transmission Date: 20241017
  Serious: Yes (Death, Other)
  Sender: MERCK
  Company Number: JP-MSD-M2024-16906

PATIENT
  Age: 74 Year
  Sex: Female

DRUGS (1)
  1. LAGEVRIO [Suspect]
     Active Substance: MOLNUPIRAVIR
     Indication: COVID-19 treatment
     Dosage: 800 MILLIGRAM, BID
     Route: 048
     Dates: start: 20240411, end: 20240412

REACTIONS (2)
  - Death [Fatal]
  - Condition aggravated [Unknown]

NARRATIVE: CASE EVENT DATE: 20240401
